FAERS Safety Report 15803227 (Version 1)
Quarter: 2019Q1

REPORT INFORMATION
  Report Type: Spontaneous
  Country: CA (occurrence: CA)
  Receive Date: 20190109
  Receipt Date: 20190109
  Transmission Date: 20190417
  Serious: Yes (Life-Threatening, Hospitalization)
  Sender: FDA-Public Use
  Company Number: CA-PFIZER INC-2019007964

PATIENT
  Age: 81 Year
  Sex: Female

DRUGS (5)
  1. MIDAZOLAM [Suspect]
     Active Substance: MIDAZOLAM HYDROCHLORIDE
     Indication: ENDOTRACHEAL INTUBATION
     Dosage: 1 MG, UNK
     Route: 042
  2. LIDOCAINE. [Suspect]
     Active Substance: LIDOCAINE
     Indication: NEUROMUSCULAR BLOCKADE
     Dosage: 100 MG, UNK
     Route: 061
  3. LIDOCAINE HCL AND DEXTROSE [Suspect]
     Active Substance: DEXTROSE\LIDOCAINE HYDROCHLORIDE
     Indication: OFF LABEL USE
     Dosage: 200 MG, UNK
  4. LIDOCAINE HCL AND DEXTROSE [Suspect]
     Active Substance: DEXTROSE\LIDOCAINE HYDROCHLORIDE
     Indication: NEUROMUSCULAR BLOCKADE
  5. GLYCOPYRRONIUM BROMIDE [Suspect]
     Active Substance: GLYCOPYRRONIUM
     Indication: ENDOTRACHEAL INTUBATION
     Dosage: 0.2 MG, UNK
     Route: 042

REACTIONS (5)
  - Upper airway obstruction [Unknown]
  - Tachycardia [Unknown]
  - Bradycardia [Unknown]
  - Hypotension [Unknown]
  - Pulse absent [Unknown]
